FAERS Safety Report 9087516 (Version 1)
Quarter: 2013Q1

REPORT INFORMATION
  Report Type: Report from Study
  Country: US (occurrence: US)
  Receive Date: 20130131
  Receipt Date: 20130131
  Transmission Date: 20140127
  Serious: No
  Sender: FDA-Public Use
  Company Number: US-ABBOTT-12P-163-0993525-00

PATIENT
  Age: 22 Year
  Sex: Female

DRUGS (7)
  1. HUMIRA [Suspect]
     Indication: COLITIS ULCERATIVE
     Dates: start: 20120904
  2. HUMIRA [Suspect]
     Dates: start: 20120917
  3. HUMIRA [Suspect]
     Dates: start: 20120930
  4. LIALDA [Concomitant]
     Indication: COLITIS ULCERATIVE
     Dosage: 1200 MG DAILY
  5. IMURAN [Concomitant]
     Indication: COLITIS ULCERATIVE
     Dosage: 1 TAB DAILY
  6. XYZAL [Concomitant]
     Indication: HYPERSENSITIVITY
     Dosage: 5 MG, ONE TAB DAILY
  7. BIRTH CONTROL PILL [Concomitant]
     Indication: PRODUCT USED FOR UNKNOWN INDICATION
     Dosage: 1 TAB DAILY

REACTIONS (6)
  - Malaise [Not Recovered/Not Resolved]
  - Pyrexia [Not Recovered/Not Resolved]
  - Diarrhoea [Not Recovered/Not Resolved]
  - Abdominal pain [Not Recovered/Not Resolved]
  - Haematochezia [Not Recovered/Not Resolved]
  - Abdominal discomfort [Not Recovered/Not Resolved]
